FAERS Safety Report 6322286-9 (Version None)
Quarter: 2009Q3

REPORT INFORMATION
  Report Type: 
  Country: None (occurrence: None)
  Receive Date: 20090824
  Receipt Date: 20090817
  Transmission Date: 20100115
  Serious: Yes (Death, Other)
  Sender: FDA-Public Use
  Company Number: US-ROCHE-650800

PATIENT
  Age: 23 Year
  Sex: Female

DRUGS (10)
  1. MYCOPHENOLATE MOFETIL [Suspect]
     Indication: SYSTEMIC LUPUS ERYTHEMATOSUS
     Route: 065
  2. RITUXIMAB [Suspect]
     Indication: SYSTEMIC LUPUS ERYTHEMATOSUS
     Dosage: THREE COURSES FOR 4 WEEKS, 6-9 MONTHS APART; FORM INFUSION
     Route: 065
  3. RITUXIMAB [Suspect]
     Dosage: TWO INFUSIONS TWO WEEKS APART
     Route: 065
  4. AZATHIOPRINE [Concomitant]
     Dosage: 1 MG/KG
  5. METHYLPREDNISOLONE [Concomitant]
     Route: 042
  6. METHYLPREDNISOLONE [Concomitant]
     Dosage: PULSE DOSE; TAPERED SLOWLY
     Route: 042
  7. METHYLPREDNISOLONE [Concomitant]
     Dosage: MAINTENANCE DAILY DOSE
     Route: 042
  8. PREDNISONE TAB [Concomitant]
     Dosage: 1 MG/KG PER DAY
  9. CYCLOPHOSPHAMIDE [Concomitant]
     Route: 042
  10. CYCLOPHOSPHAMIDE [Concomitant]
     Dosage: ON DAY 2 , 17 AND 32
     Route: 042

REACTIONS (14)
  - AUTOIMMUNE THROMBOCYTOPENIA [None]
  - BRONCHOPULMONARY ASPERGILLOSIS [None]
  - CARDIO-RESPIRATORY ARREST [None]
  - CYTOMEGALOVIRUS VIRAEMIA [None]
  - DEATH [None]
  - DECUBITUS ULCER [None]
  - GASTRITIS HAEMORRHAGIC [None]
  - GASTROINTESTINAL DISORDER [None]
  - HYPERKALAEMIA [None]
  - PNEUMONIA KLEBSIELLA [None]
  - PULMONARY ALVEOLAR HAEMORRHAGE [None]
  - RENAL FAILURE [None]
  - SINUS TACHYCARDIA [None]
  - STAPHYLOCOCCAL BACTERAEMIA [None]
